FAERS Safety Report 19355119 (Version 4)
Quarter: 2021Q4

REPORT INFORMATION
  Report Type: Report from Study
  Country: MX (occurrence: MX)
  Receive Date: 20210531
  Receipt Date: 20211216
  Transmission Date: 20220303
  Serious: Yes (Other)
  Sender: FDA-Public Use
  Company Number: NVSC2021MX119381

PATIENT
  Age: 69 Year
  Sex: Female

DRUGS (7)
  1. EXFORGE HCT [Suspect]
     Active Substance: AMLODIPINE BESYLATE\HYDROCHLOROTHIAZIDE\VALSARTAN
     Indication: Cardiac disorder
     Dosage: 1 DOSAGE FORM, QD
     Route: 048
     Dates: start: 201304, end: 201512
  2. EXFORGE HCT [Suspect]
     Active Substance: AMLODIPINE BESYLATE\HYDROCHLOROTHIAZIDE\VALSARTAN
     Indication: Arrhythmia
  3. EXFORGE HCT [Suspect]
     Active Substance: AMLODIPINE BESYLATE\HYDROCHLOROTHIAZIDE\VALSARTAN
     Indication: Hypertension
  4. EXFORGE [Suspect]
     Active Substance: AMLODIPINE BESYLATE\VALSARTAN
     Indication: Cardiac disorder
     Dosage: 1 DOSAGE FORM, QD
     Route: 048
     Dates: start: 201512, end: 20210521
  5. EXFORGE [Suspect]
     Active Substance: AMLODIPINE BESYLATE\VALSARTAN
     Indication: Arrhythmia
  6. EXFORGE [Suspect]
     Active Substance: AMLODIPINE BESYLATE\VALSARTAN
     Indication: Hypertension
  7. METOPROLOL [Suspect]
     Active Substance: METOPROLOL
     Indication: Hypertension
     Dosage: 0.5 DOSAGE FORM, Q12H
     Route: 048
     Dates: start: 2015

REACTIONS (13)
  - Bradycardia [Unknown]
  - Cardiovascular disorder [Recovered/Resolved]
  - Muscle spasms [Recovered/Resolved]
  - Peripheral swelling [Recovered/Resolved]
  - Poor peripheral circulation [Unknown]
  - Blood pressure increased [Unknown]
  - Movement disorder [Unknown]
  - Erythema [Unknown]
  - Pain [Unknown]
  - Swelling [Unknown]
  - Drug intolerance [Unknown]
  - Blood glucose increased [Unknown]
  - Off label use [Unknown]

NARRATIVE: CASE EVENT DATE: 20210401
